FAERS Safety Report 25523842 (Version 1)
Quarter: 2025Q3

REPORT INFORMATION
  Report Type: Spontaneous
  Country: US (occurrence: US)
  Receive Date: 20250707
  Receipt Date: 20250707
  Transmission Date: 20251020
  Serious: No
  Sender: BAYER HEALTHCARE LLC
  Company Number: US-BAYER-2025A087736

PATIENT
  Age: 70 Year
  Sex: Male

DRUGS (6)
  1. CLARITIN [Suspect]
     Active Substance: LORATADINE
     Indication: Eye irritation
     Dosage: 1 DF, QD
     Route: 048
     Dates: start: 202506, end: 202506
  2. CLARITIN [Suspect]
     Active Substance: LORATADINE
     Indication: Eye pruritus
  3. ASTEPRO [Suspect]
     Active Substance: AZELASTINE HYDROCHLORIDE
     Indication: Eye irritation
     Route: 055
  4. ASTEPRO [Suspect]
     Active Substance: AZELASTINE HYDROCHLORIDE
     Indication: Eye pruritus
  5. ASTEPRO ALLERGY [Suspect]
     Active Substance: AZELASTINE HYDROCHLORIDE
     Indication: Cold urticaria
  6. ZYRTEC [Suspect]
     Active Substance: CETIRIZINE HYDROCHLORIDE
     Indication: Cold urticaria
     Route: 065

REACTIONS (2)
  - Drug ineffective [None]
  - Product prescribing issue [None]

NARRATIVE: CASE EVENT DATE: 20250601
